FAERS Safety Report 17949531 (Version 1)
Quarter: 2020Q2

REPORT INFORMATION
  Report Type: Spontaneous
  Country: US (occurrence: US)
  Receive Date: 20200626
  Receipt Date: 20200626
  Transmission Date: 20200714
  Serious: Yes (Other)
  Sender: FDA-Public Use
  Company Number: US-BAYER-2020-125617

PATIENT
  Age: 35 Year
  Sex: Female

DRUGS (1)
  1. MIRENA [Suspect]
     Active Substance: LEVONORGESTREL
     Indication: CONTRACEPTION
     Dosage: 20 ?G PER DAY CONTNIUOUSLY
     Route: 015
     Dates: start: 20200204

REACTIONS (3)
  - Device dislocation [Not Recovered/Not Resolved]
  - Medical device pain [None]
  - Vaginal discharge [None]

NARRATIVE: CASE EVENT DATE: 20200613
